FAERS Safety Report 13689272 (Version 3)
Quarter: 2017Q3

REPORT INFORMATION
  Report Type: Spontaneous
  Country: US (occurrence: US)
  Receive Date: 20170626
  Receipt Date: 20170726
  Transmission Date: 20171127
  Serious: No
  Sender: FDA-Public Use
  Company Number: US-PFIZER INC-2017271804

PATIENT
  Sex: Male

DRUGS (1)
  1. XELJANZ XR [Suspect]
     Active Substance: TOFACITINIB CITRATE
     Indication: MUSCULOSKELETAL PAIN
     Dosage: 11 MG, DAILY

REACTIONS (4)
  - Musculoskeletal stiffness [Not Recovered/Not Resolved]
  - Drug effect incomplete [Unknown]
  - Arthralgia [Unknown]
  - Joint swelling [Unknown]
